FAERS Safety Report 6992870-8 (Version None)
Quarter: 2010Q3

REPORT INFORMATION
  Report Type: 
  Country: None (occurrence: None)
  Receive Date: 20100917
  Receipt Date: 20100907
  Transmission Date: 20110219
  Serious: Yes (Hospitalization)
  Sender: FDA-Public Use
  Company Number: B0674486A

PATIENT
  Sex: Male
  Weight: 71 kg

DRUGS (4)
  1. PAZOPANIB [Suspect]
     Indication: NEOPLASM MALIGNANT
     Route: 048
     Dates: start: 20100802, end: 20100903
  2. IFOSFAMIDE [Suspect]
     Indication: NEOPLASM MALIGNANT
     Route: 042
     Dates: start: 20100809, end: 20100830
  3. LISINOPRIL [Concomitant]
     Indication: HYPERTENSION
     Dosage: 10MG PER DAY
     Route: 048
     Dates: start: 20100809, end: 20100905
  4. FENTANYL CITRATE [Concomitant]
     Indication: PAIN
     Dosage: 25UG EVERY 3 DAYS
     Route: 062
     Dates: start: 20100101

REACTIONS (2)
  - DYSPNOEA [None]
  - PULMONARY EMBOLISM [None]
